FAERS Safety Report 6340160-9 (Version None)
Quarter: 2009Q3

REPORT INFORMATION
  Report Type: 
  Country: None (occurrence: None)
  Receive Date: 20090902
  Receipt Date: 20090819
  Transmission Date: 20100115
  Serious: Yes (Hospitalization)
  Sender: FDA-Public Use
  Company Number: 001567

PATIENT
  Sex: Male

DRUGS (5)
  1. ISOSORBIDE MONONITRATE [Suspect]
     Indication: ANGINA PECTORIS
     Dosage: 60 MG QD ORAL
     Route: 048
     Dates: start: 20020828
  2. LISINOPRIL [Suspect]
     Indication: HYPERTENSION
     Dosage: 5 MG QD ORAL, 2.5 MG QD ORAL
     Route: 048
     Dates: start: 20090320, end: 20090320
  3. LISINOPRIL [Suspect]
     Indication: HYPERTENSION
     Dosage: 5 MG QD ORAL, 2.5 MG QD ORAL
     Route: 048
     Dates: start: 20090321
  4. TOPROL-XL [Suspect]
     Indication: ANGINA UNSTABLE
     Dosage: 50 MG QD ORAL
     Route: 048
     Dates: start: 20000111
  5. INFLUENZA VACCINE [Suspect]
     Dosage: INTRAMUSCULAR
     Route: 030
     Dates: start: 20081017, end: 20081017

REACTIONS (4)
  - DIZZINESS [None]
  - HYPOTENSION [None]
  - NON-CARDIAC CHEST PAIN [None]
  - PRESYNCOPE [None]
